FAERS Safety Report 7049792-6 (Version None)
Quarter: 2010Q4

REPORT INFORMATION
  Report Type: 
  Country: None (occurrence: None)
  Receive Date: 20101018
  Receipt Date: 20100930
  Transmission Date: 20110411
  Serious: Yes (Hospitalization)
  Sender: FDA-Public Use
  Company Number: US-BAYER-201021082NA

PATIENT
  Age: 16 Year
  Sex: Female
  Weight: 60 kg

DRUGS (9)
  1. YASMIN [Suspect]
     Indication: ACNE
     Route: 048
     Dates: start: 20060501, end: 20060901
  2. SPIRONOLACTONE [Concomitant]
     Indication: ACNE
  3. ASPIRIN [Concomitant]
  4. GABAPENTIN [Concomitant]
  5. PRILOSEC [Concomitant]
  6. VELIVET [Concomitant]
     Indication: ACNE
     Dates: start: 20060901
  7. MOTRIN [Concomitant]
     Indication: PAIN IN EXTREMITY
     Dates: start: 20061001
  8. TYLENOL [Concomitant]
     Indication: NON-CARDIAC CHEST PAIN
     Dates: start: 20061001
  9. BACTRIM [Concomitant]
     Indication: ACNE

REACTIONS (2)
  - DEEP VEIN THROMBOSIS [None]
  - PULMONARY EMBOLISM [None]
